FAERS Safety Report 4523313-1 (Version None)
Quarter: 2004Q4

REPORT INFORMATION
  Report Type: 
  Country: None (occurrence: None)
  Receive Date: 20041209
  Receipt Date: 20041203
  Transmission Date: 20050328
  Serious: Yes (Death)
  Sender: FDA-Public Use
  Company Number: 2004-BP-13094RO

PATIENT
  Sex: Male

DRUGS (3)
  1. DEXAMETHASONE [Suspect]
     Indication: DRUG EXPOSURE DURING PREGNANCY
     Dosage: SEE IMAGE
     Dates: start: 20040818, end: 20041002
  2. LOVENOX [Suspect]
     Indication: DRUG EXPOSURE DURING PREGNANCY
     Dosage: SEE IMAGE
     Dates: start: 20040801, end: 20040801
  3. ZOLOFT [Suspect]
     Dosage: SEE IMAGE
     Route: 064
     Dates: start: 20040801, end: 20041001

REACTIONS (3)
  - DRUG EXPOSURE DURING PREGNANCY [None]
  - FOETAL GROWTH RETARDATION [None]
  - INTRA-UTERINE DEATH [None]
